FAERS Safety Report 17750592 (Version 1)
Quarter: 2020Q2

REPORT INFORMATION
  Report Type: Spontaneous
  Country: US (occurrence: US)
  Receive Date: 20200505
  Receipt Date: 20200505
  Transmission Date: 20200714
  Serious: Yes (Hospitalization)
  Sender: FDA-Public Use
  Company Number: None

PATIENT
  Age: 56 Year
  Sex: Female

DRUGS (1)
  1. CAPECITABINE 500 MG NOVADOZ PHARMACEUTICALS [Suspect]
     Active Substance: CAPECITABINE
     Indication: COLON CANCER
     Dosage: SEE EVENT
     Route: 048
     Dates: start: 20190430

REACTIONS (2)
  - Full blood count decreased [None]
  - Therapy interrupted [None]

NARRATIVE: CASE EVENT DATE: 202004
